FAERS Safety Report 6062116-6 (Version None)
Quarter: 2009Q1

REPORT INFORMATION
  Report Type: 
  Country: None (occurrence: None)
  Receive Date: 20090203
  Receipt Date: 20090128
  Transmission Date: 20090719
  Serious: Yes (Hospitalization)
  Sender: FDA-Public Use
  Company Number: JP-SP-2009-00257

PATIENT
  Age: 61 Year
  Sex: Male

DRUGS (2)
  1. IMMUCYST [Suspect]
     Indication: BLADDER CANCER
     Route: 043
     Dates: start: 20090107, end: 20090121
  2. IMMUCYST [Suspect]
     Route: 043
     Dates: start: 20090107, end: 20090121

REACTIONS (4)
  - BILE DUCT CANCER [None]
  - INCORRECT DOSE ADMINISTERED [None]
  - JAUNDICE [None]
  - PANCREATIC CARCINOMA [None]
